FAERS Safety Report 8995196 (Version 9)
Quarter: 2014Q2

REPORT INFORMATION
  Report Type: Report from Study
  Country: CA (occurrence: CA)
  Receive Date: 20130102
  Receipt Date: 20140630
  Transmission Date: 20141212
  Serious: Yes (Hospitalization)
  Sender: FDA-Public Use
  Company Number: CA-ROCHE-1173633

PATIENT
  Age: 80 Year
  Sex: Male
  Weight: 63.9 kg

DRUGS (15)
  1. VEMURAFENIB [Suspect]
     Indication: METASTATIC MALIGNANT MELANOMA
     Dosage: LAST DOSE PRIOR TO SAE: 30/NOV/2012, PILL
     Route: 048
     Dates: start: 20110714
  2. VEMURAFENIB [Suspect]
     Dosage: LAST DOSE PRIOR TO SAE: 13/JUL/2011
     Route: 048
     Dates: start: 20110613
  3. ALENDRONATE [Concomitant]
     Route: 065
     Dates: start: 1991
  4. AVODART [Concomitant]
     Route: 065
     Dates: start: 2001
  5. CHOLECALCIFEROL [Concomitant]
     Dosage: DOSE: 1000
     Route: 065
     Dates: start: 2009
  6. ENTOCORT [Concomitant]
     Route: 065
     Dates: start: 1991
  7. FERROUS GLUCONATE [Concomitant]
     Route: 065
     Dates: start: 1991
  8. FLOMAX (CANADA) [Concomitant]
     Route: 065
     Dates: start: 2001
  9. FLURAZEPAM [Concomitant]
     Route: 065
     Dates: start: 2008
  10. IBUPROFEN [Concomitant]
     Route: 065
     Dates: start: 1996
  11. OMEPRAZOLE [Concomitant]
     Route: 065
     Dates: start: 1996
  12. MELATONIN [Concomitant]
     Route: 065
     Dates: start: 20120707
  13. INTERLEUKIN-2 [Concomitant]
     Route: 065
     Dates: start: 20120918
  14. PREDNISONE [Concomitant]
     Dosage: DOSE: 2 DROP
     Route: 065
     Dates: start: 20121122
  15. VITAMIN B12 [Concomitant]
     Route: 065
     Dates: start: 2001

REACTIONS (1)
  - Transitional cell carcinoma [Recovered/Resolved]
